FAERS Safety Report 8955443 (Version 1)
Quarter: 2012Q4

REPORT INFORMATION
  Report Type: 
  Country: CA (occurrence: CA)
  Receive Date: 20121207
  Receipt Date: 20121207
  Transmission Date: 20130627
  Serious: Yes (Other)
  Sender: FDA-Public Use
  Company Number: CA-ROCHE-1165314

PATIENT
  Sex: Male

DRUGS (11)
  1. XOLAIR [Suspect]
     Indication: PRODUCT USED FOR UNKNOWN INDICATION
     Route: 065
     Dates: start: 20050815
  2. CORTISONE [Concomitant]
     Route: 065
  3. CORTISONE [Concomitant]
     Route: 065
  4. CORTISONE [Concomitant]
     Route: 065
  5. CORTISONE [Concomitant]
     Route: 065
  6. REMERON [Concomitant]
     Route: 065
  7. PREDNISONE [Concomitant]
     Route: 065
  8. PREDNISONE [Concomitant]
     Route: 065
  9. SYMBICORT [Concomitant]
     Route: 065
  10. ALVESCO [Concomitant]
  11. VENTOLIN [Concomitant]

REACTIONS (11)
  - Hypersensitivity [Unknown]
  - Pulmonary congestion [Recovered/Resolved]
  - Nasopharyngitis [Recovered/Resolved]
  - Breath sounds abnormal [Unknown]
  - Productive cough [Unknown]
  - Paraesthesia oral [Unknown]
  - Dyspnoea exertional [Unknown]
  - Wheezing [Recovered/Resolved]
  - Fatigue [Unknown]
  - Injection site pain [Unknown]
  - Sputum discoloured [Unknown]
